FAERS Safety Report 23221297 (Version 2)
Quarter: 2024Q1

REPORT INFORMATION
  Report Type: Spontaneous
  Country: US (occurrence: US)
  Receive Date: 20231123
  Receipt Date: 20240126
  Transmission Date: 20240410
  Serious: Yes (Other)
  Sender: FDA-Public Use
  Company Number: US-BRISTOL-MYERS SQUIBB COMPANY-2023-167864

PATIENT
  Age: 73 Year
  Sex: Male
  Weight: 147.87 kg

DRUGS (1)
  1. REVLIMID [Suspect]
     Active Substance: LENALIDOMIDE
     Indication: Plasma cell myeloma
     Dosage: 2W ON 2W OFF
     Route: 048

REACTIONS (2)
  - Aortic aneurysm [Recovering/Resolving]
  - Blood test abnormal [Unknown]
